FAERS Safety Report 5629590-8 (Version None)
Quarter: 2008Q1

REPORT INFORMATION
  Report Type: 
  Country: None (occurrence: None)
  Receive Date: 20080218
  Receipt Date: 20080207
  Transmission Date: 20080703
  Serious: Yes (Hospitalization)
  Sender: FDA-Public Use
  Company Number: US-AMGEN-QUU261981

PATIENT
  Sex: Female
  Weight: 74 kg

DRUGS (24)
  1. ENBREL [Suspect]
     Indication: RHEUMATOID ARTHRITIS
     Route: 058
     Dates: start: 20020513
  2. ENBREL [Suspect]
     Indication: OSTEOARTHRITIS
  3. ASPIRIN [Concomitant]
     Route: 048
     Dates: start: 20020513
  4. TOPROL-XL [Concomitant]
     Route: 048
  5. CRESTOR [Concomitant]
     Route: 048
     Dates: start: 20050509
  6. ACTONEL [Concomitant]
     Dates: start: 20040513
  7. ACIPHEX [Concomitant]
     Route: 048
     Dates: start: 20020513
  8. DARVOCET-N 100 [Concomitant]
     Dates: start: 20020513
  9. MIACALCIN [Concomitant]
     Dates: start: 20040513
  10. NEURONTIN [Concomitant]
     Route: 048
     Dates: start: 20050509
  11. NITROSTAT [Concomitant]
     Dates: start: 20020513
  12. DESYREL [Concomitant]
     Route: 048
     Dates: start: 20020513
  13. PLAVIX [Concomitant]
     Route: 048
  14. ZIAC [Concomitant]
     Route: 048
  15. NORFLEX [Concomitant]
     Route: 048
  16. BETOPTIC [Concomitant]
     Route: 047
     Dates: start: 20040513
  17. TYLENOL (CAPLET) [Concomitant]
  18. LASIX [Concomitant]
     Route: 048
  19. FIORINAL [Concomitant]
  20. LOMOTIL [Concomitant]
  21. ANUSOL [Concomitant]
  22. CLOTRIMAZOLE [Concomitant]
  23. VITAMIN CAP [Concomitant]
  24. CALCIUM WITH VITAMIN D [Concomitant]

REACTIONS (1)
  - CORONARY ARTERY DISEASE [None]
